FAERS Safety Report 24681469 (Version 3)
Quarter: 2025Q2

REPORT INFORMATION
  Report Type: Spontaneous
  Country: US (occurrence: US)
  Receive Date: 20241130
  Receipt Date: 20250627
  Transmission Date: 20250717
  Serious: No
  Sender: SANOFI AVENTIS
  Company Number: US-SA-2024SA348472

PATIENT
  Age: 45 Year
  Sex: Female

DRUGS (3)
  1. DUPIXENT [Suspect]
     Active Substance: DUPILUMAB
     Indication: Dermatitis atopic
     Route: 058
     Dates: start: 20240202, end: 20240202
  2. DUPIXENT [Suspect]
     Active Substance: DUPILUMAB
     Indication: Eczema
     Dosage: 300 MG, QOW
     Route: 058
     Dates: start: 202402
  3. PREGNYL [Concomitant]
     Active Substance: CHORIOGONADOTROPIN ALFA

REACTIONS (6)
  - Stress [Unknown]
  - Condition aggravated [Unknown]
  - Dermatitis atopic [Unknown]
  - Pruritus [Unknown]
  - Scratch [Unknown]
  - Skin irritation [Unknown]

NARRATIVE: CASE EVENT DATE: 20240101
